FAERS Safety Report 4527604-X (Version None)
Quarter: 2004Q4

REPORT INFORMATION
  Report Type: 
  Country: None (occurrence: None)
  Receive Date: 20041130
  Receipt Date: 20041005
  Transmission Date: 20050328
  Serious: No
  Sender: FDA-Public Use
  Company Number: WAES 0410USA00795

PATIENT
  Age: 65 Year
  Sex: Female

DRUGS (3)
  1. ZETIA [Suspect]
     Indication: BLOOD CHOLESTEROL INCREASED
     Dosage: 10 MG/DAILY/PO
     Route: 048
     Dates: start: 20040901, end: 20041003
  2. PAXIL [Concomitant]
  3. PREMPRO [Concomitant]

REACTIONS (1)
  - ABDOMINAL PAIN UPPER [None]
